FAERS Safety Report 7486649-0 (Version None)
Quarter: 2011Q2

REPORT INFORMATION
  Report Type: 
  Country: None (occurrence: None)
  Receive Date: 20110517
  Receipt Date: 20110505
  Transmission Date: 20111010
  Serious: Yes (Hospitalization, Other)
  Sender: FDA-Public Use
  Company Number: ES-ELI_LILLY_AND_COMPANY-ES201105001530

PATIENT
  Sex: Male
  Weight: 90 kg

DRUGS (5)
  1. FORTEO [Suspect]
     Indication: OSTEOPOROSIS
     Dosage: 20 UG, QD
     Route: 058
     Dates: start: 20110413, end: 20110416
  2. PLAVIX [Concomitant]
     Indication: ANGIOPATHY
     Dosage: UNK, QD
     Route: 048
  3. HEMOVAS [Concomitant]
     Indication: ANGIOPATHY
     Dosage: UNK, QD
     Route: 048
  4. ESCITALOPRAM [Concomitant]
     Indication: DEMENTIA ALZHEIMER'S TYPE
     Dosage: 15 MG, QD
     Route: 048
  5. ARICEPT [Concomitant]
     Indication: DEMENTIA ALZHEIMER'S TYPE
     Dosage: 5 MG, QD
     Route: 048

REACTIONS (1)
  - POSTOPERATIVE WOUND INFECTION [None]
